FAERS Safety Report 8390890-2 (Version None)
Quarter: 2012Q2

REPORT INFORMATION
  Report Type: 
  Country: None (occurrence: None)
  Receive Date: 20120529
  Receipt Date: 20120516
  Transmission Date: 20120825
  Serious: Yes (Hospitalization, Other)
  Sender: FDA-Public Use
  Company Number: DK-JNJFOC-20120206120

PATIENT
  Sex: Female
  Weight: 80 kg

DRUGS (5)
  1. SIMPONI [Concomitant]
     Indication: RHEUMATOID ARTHRITIS
     Route: 058
     Dates: start: 20110406, end: 20111117
  2. DIPROSPAN [Concomitant]
  3. IBUPROFEN [Concomitant]
  4. HUMIRA [Suspect]
     Indication: RHEUMATOID ARTHRITIS
     Dosage: 40 (UNITS UNSPECIFIED)
     Route: 065
     Dates: start: 20110309, end: 20110309
  5. REMICADE [Suspect]
     Indication: RHEUMATOID ARTHRITIS
     Dosage: 260 (UNITS UNSPECIFIED)
     Route: 042
     Dates: start: 20041013, end: 20100721

REACTIONS (1)
  - MALIGNANT MELANOMA STAGE I [None]
